FAERS Safety Report 21199165 (Version 1)
Quarter: 2022Q3

REPORT INFORMATION
  Report Type: Spontaneous
  Country: FR (occurrence: FR)
  Receive Date: 20220811
  Receipt Date: 20220811
  Transmission Date: 20221027
  Serious: Yes (Other)
  Sender: FDA-Public Use
  Company Number: None

PATIENT
  Age: 20 Year
  Sex: Male
  Weight: 95 kg

DRUGS (1)
  1. NEBIVOLOL [Suspect]
     Active Substance: NEBIVOLOL
     Indication: Essential hypertension
     Dosage: UNIT DOSE : 2.5MG, , FREQUENCY TIME : 1 DAY, THERAPY END DATE : NASK
     Route: 065
     Dates: start: 2009

REACTIONS (1)
  - Hyperhidrosis [Not Recovered/Not Resolved]
